FAERS Safety Report 22635957 (Version 1)
Quarter: 2023Q2

REPORT INFORMATION
  Report Type: Spontaneous
  Country: GB (occurrence: GB)
  Receive Date: 20230623
  Receipt Date: 20230623
  Transmission Date: 20230722
  Serious: Yes (Death)
  Sender: FDA-Public Use
  Company Number: GB-MALLINCKRODT-MNK202302662

PATIENT
  Age: 1 Year

DRUGS (1)
  1. UVADEX [Suspect]
     Active Substance: METHOXSALEN
     Indication: Graft versus host disease
     Dosage: UNKNOWN
     Route: 050

REACTIONS (2)
  - Vascular device infection [Fatal]
  - Product use in unapproved indication [Unknown]
